FAERS Safety Report 12861185 (Version 1)
Quarter: 2016Q4

REPORT INFORMATION
  Report Type: Spontaneous
  Country: JP (occurrence: JP)
  Receive Date: 20161019
  Receipt Date: 20161019
  Transmission Date: 20170207
  Serious: Yes (Hospitalization, Other)
  Sender: FDA-Public Use
  Company Number: PHJP2016JP029331

PATIENT
  Age: 68 Year
  Sex: Male

DRUGS (1)
  1. EXELON PATCH [Suspect]
     Active Substance: RIVASTIGMINE
     Indication: PRODUCT USED FOR UNKNOWN INDICATION
     Dosage: 6.9 MG, QD PATCH 7.5 (CM2)
     Route: 062

REACTIONS (4)
  - Blood pressure increased [Unknown]
  - Orthostatic hypotension [Unknown]
  - Dizziness [Unknown]
  - Movement disorder [Unknown]
